FAERS Safety Report 5894169-X (Version None)
Quarter: 2008Q3

REPORT INFORMATION
  Report Type: 
  Country: None (occurrence: None)
  Receive Date: 20080923
  Receipt Date: 20080215
  Transmission Date: 20090109
  Serious: No
  Sender: FDA-Public Use
  Company Number: US-ASTRAZENECA-2008UW03144

PATIENT
  Age: 59 Year
  Sex: Male
  Weight: 103.4 kg

DRUGS (8)
  1. SEROQUEL [Suspect]
     Indication: INSOMNIA
     Route: 048
     Dates: start: 20080213
  2. SEROQUEL [Suspect]
     Route: 048
     Dates: start: 20080214
  3. METOPROLOL TARTRATE [Concomitant]
  4. LISINOPRIL [Concomitant]
  5. METFORMIN HCL [Concomitant]
  6. GLIPIZIDE [Concomitant]
  7. LIPITOR [Concomitant]
  8. COUGH SYRUP [Concomitant]

REACTIONS (3)
  - DIZZINESS [None]
  - NASOPHARYNGITIS [None]
  - SOMNOLENCE [None]
